FAERS Safety Report 5310391-5 (Version None)
Quarter: 2007Q2

REPORT INFORMATION
  Report Type: 
  Country: None (occurrence: None)
  Receive Date: 20070427
  Receipt Date: 20070419
  Transmission Date: 20071010
  Serious: Yes (Other)
  Sender: FDA-Public Use
  Company Number: US-ELI_LILLY_AND_COMPANY-US200704004236

PATIENT
  Age: 81 Year
  Sex: Female

DRUGS (7)
  1. BYETTA [Suspect]
     Indication: DIABETES MELLITUS NON-INSULIN-DEPENDENT
     Dosage: 10 UG, 2/D
     Route: 058
     Dates: start: 20060701
  2. LANTUS [Concomitant]
     Indication: DIABETES MELLITUS NON-INSULIN-DEPENDENT
     Dosage: 2 U, EACH EVENING
     Route: 058
  3. LANTUS [Concomitant]
     Dosage: 10 U, EACH EVENING
     Route: 058
  4. LANTUS [Concomitant]
     Dosage: 12 U, EACH EVENING
     Route: 058
  5. LANTUS [Concomitant]
     Dosage: 10 U, EACH EVENING
     Route: 058
  6. METFORMIN HCL [Concomitant]
     Indication: DIABETES MELLITUS NON-INSULIN-DEPENDENT
     Dosage: 1000 MG, 2/D
     Route: 048
     Dates: start: 20040101
  7. GLIMEPIRIDE [Concomitant]
     Indication: DIABETES MELLITUS NON-INSULIN-DEPENDENT
     Dosage: 4 MG, 2/D
     Route: 048
     Dates: start: 20040101

REACTIONS (6)
  - BLOOD GLUCOSE DECREASED [None]
  - BLOOD GLUCOSE INCREASED [None]
  - GAIT DISTURBANCE [None]
  - LOSS OF CONSCIOUSNESS [None]
  - MEMORY IMPAIRMENT [None]
  - TREMOR [None]
